FAERS Safety Report 10616507 (Version 2)
Quarter: 2015Q1

REPORT INFORMATION
  Report Type: Spontaneous
  Country: RO (occurrence: RO)
  Receive Date: 20141201
  Receipt Date: 20150107
  Transmission Date: 20150720
  Serious: Yes (Hospitalization)
  Sender: FDA-Public Use
  Company Number: RO-SA-2014SA162252

PATIENT
  Age: 66 Year
  Sex: Female

DRUGS (25)
  1. INSULIN [Suspect]
     Active Substance: INSULIN NOS
     Route: 065
  2. PYRAZINAMIDE. [Suspect]
     Active Substance: PYRAZINAMIDE
     Dosage: IN A SINGLE DOSE MONDAY-WEDNESDAY-FRIDAY
     Route: 065
  3. SINTHROME [Suspect]
     Active Substance: ACENOCOUMAROL
     Route: 065
  4. PRESTARIUM [Suspect]
     Active Substance: PERINDOPRIL
     Route: 065
  5. FUROSEMIDE. [Suspect]
     Active Substance: FUROSEMIDE
     Route: 065
  6. FUROSEMIDE. [Suspect]
     Active Substance: FUROSEMIDE
     Dosage: 5 AMPOULES/ 50 ML WITH 2 ML/HOUR
     Route: 065
  7. CIPROFLOXACIN. [Suspect]
     Active Substance: CIPROFLOXACIN
     Dosage: 1 AMPOULE * 2/DAY
     Route: 065
  8. ALLOPURINOL. [Suspect]
     Active Substance: ALLOPURINOL
     Route: 065
  9. RIFAMPICIN [Suspect]
     Active Substance: RIFAMPIN
     Dosage: IN A SINGLE DOSE MONDAY-WEDNESDAY-FRIDAY
     Route: 065
  10. SINTHROME [Suspect]
     Active Substance: ACENOCOUMAROL
     Dosage: 3/4 CAPSULES/DAY
     Route: 065
  11. CARVEDILOL. [Suspect]
     Active Substance: CARVEDILOL
     Dosage: 6.25 MG 1/2 CAPSULE/ DAY
     Route: 065
  12. ALL OTHER THERAPEUTIC PRODUCTS [Suspect]
     Active Substance: UNSPECIFIED INGREDIENT
     Dosage: 1 CAPSULE* 3/DAY
     Route: 065
  13. DIGOXIN. [Suspect]
     Active Substance: DIGOXIN
     Dosage: 0.5 MG 1/2 AMPOULES IV SLOW
     Route: 042
  14. DIAPREL [Suspect]
     Active Substance: GLICLAZIDE
     Dosage: 60 MG 1/2 CAPSULES/ DAY
     Route: 065
  15. CARVEDILOL. [Suspect]
     Active Substance: CARVEDILOL
     Dosage: 6.25 MG 1/2 CAPSULES * 2 DAYS
     Route: 065
  16. PRESTARIUM [Suspect]
     Active Substance: PERINDOPRIL
     Route: 065
  17. OMEPRAZOLE. [Suspect]
     Active Substance: OMEPRAZOLE
     Route: 065
  18. PANANGIN [Suspect]
     Active Substance: MAGNESIUM ASPARTATE\POTASSIUM ASPARTATE
     Route: 065
  19. GLUCOSE [Suspect]
     Active Substance: DEXTROSE
     Dosage: 10%+12 IU
     Route: 065
  20. SPIRONOLACTONE. [Suspect]
     Active Substance: SPIRONOLACTONE
     Route: 065
  21. SPIRONOLACTONE. [Suspect]
     Active Substance: SPIRONOLACTONE
     Dosage: 25 MG 2 CAPSULE* 2 DAY (6-18 HOUR)
     Route: 065
  22. ETHAMBUTOL [Suspect]
     Active Substance: ETHAMBUTOL HYDROCHLORIDE
     Dosage: IN A SINGLE DOSE MONDAY-WEDNESDAY-FRIDAY
     Route: 065
  23. SALINE [Suspect]
     Active Substance: SODIUM CHLORIDE
     Route: 065
  24. CONTROLOC [Suspect]
     Active Substance: PANTOPRAZOLE SODIUM
     Route: 065
  25. IMIPENEM [Suspect]
     Active Substance: IMIPENEM
     Dosage: 1 AMPOULE * 2/DAY 500 MG
     Route: 065

REACTIONS (4)
  - Clostridium difficile colitis [Recovered/Resolved]
  - Urinary tract infection bacterial [Recovered/Resolved]
  - Tuberculosis [Recovered/Resolved]
  - Toxicity to various agents [Recovered/Resolved]
